FAERS Safety Report 11159079 (Version 3)
Quarter: 2015Q3

REPORT INFORMATION
  Report Type: Spontaneous
  Country: US (occurrence: US)
  Receive Date: 20150603
  Receipt Date: 20150717
  Transmission Date: 20151125
  Serious: No
  Sender: FDA-Public Use
  Company Number: US-SHIRE-US201504685

PATIENT
  Age: 76 Year
  Sex: Female

DRUGS (2)
  1. PROBIOTICS                         /07325001/ [Concomitant]
     Indication: PRODUCT USED FOR UNKNOWN INDICATION
     Dosage: UNK, OTHER (ALL DAY)
     Route: 065
  2. LIALDA [Suspect]
     Active Substance: MESALAMINE
     Indication: COLITIS ULCERATIVE
     Dosage: UNK, UNKNOWN
     Route: 048

REACTIONS (5)
  - Frequent bowel movements [Unknown]
  - Drug effect decreased [Unknown]
  - Drug ineffective [Unknown]
  - Pyrexia [Unknown]
  - Abdominal pain [Unknown]
